FAERS Safety Report 9387959 (Version 2)
Quarter: 2013Q3

REPORT INFORMATION
  Report Type: Spontaneous
  Country: US (occurrence: US)
  Receive Date: 20130708
  Receipt Date: 20130814
  Transmission Date: 20140515
  Serious: Yes (Hospitalization)
  Sender: FDA-Public Use
  Company Number: US-GLAXOSMITHKLINE-A1029267A

PATIENT
  Age: 54 Year
  Sex: Male
  Weight: 50 kg

DRUGS (2)
  1. ARZERRA [Suspect]
     Indication: PRODUCT USED FOR UNKNOWN INDICATION
     Dosage: 2000MG WEEKLY
     Route: 042
     Dates: start: 20130501, end: 20130531
  2. UNKNOWN MEDICATION [Concomitant]

REACTIONS (2)
  - Pneumonia [Recovering/Resolving]
  - Malaise [Recovering/Resolving]
